FAERS Safety Report 13038199 (Version 1)
Quarter: 2016Q4

REPORT INFORMATION
  Report Type: Spontaneous
  Country: HU (occurrence: HU)
  Receive Date: 20161219
  Receipt Date: 20161219
  Transmission Date: 20170207
  Serious: Yes (Hospitalization)
  Sender: FDA-Public Use
  Company Number: HU-B.I. PHARMACEUTICALS,INC./RIDGEFIELD-2016-BI-084788

PATIENT
  Age: 50 Year
  Sex: Female
  Weight: 70 kg

DRUGS (11)
  1. MEZITAN (TRIMETAZIDIN) [Concomitant]
     Indication: MYOCARDIAL ISCHAEMIA
     Route: 065
  2. IRABEL (IRBESARTAN) [Concomitant]
     Indication: HYPERTENSION
     Route: 065
  3. PRADAXA [Suspect]
     Active Substance: DABIGATRAN ETEXILATE MESYLATE
     Indication: CEREBROVASCULAR ACCIDENT
     Route: 048
     Dates: start: 20160918
  4. ADIMET (METFORMIN) [Concomitant]
     Indication: TYPE 1 DIABETES MELLITUS
     Route: 065
  5. PRADAXA [Suspect]
     Active Substance: DABIGATRAN ETEXILATE MESYLATE
     Indication: ATRIAL FIBRILLATION
     Route: 048
     Dates: end: 20161208
  6. LANTUS INZULIN [Concomitant]
     Indication: TYPE 1 DIABETES MELLITUS
     Route: 058
  7. ASA PROTECT [Concomitant]
     Indication: CORONARY ARTERIAL STENT INSERTION
     Route: 065
  8. NOOTROPIL (PIRACETAM) [Concomitant]
     Indication: CEREBRAL INFARCTION
     Route: 065
     Dates: start: 201609, end: 201609
  9. APIDRA [Concomitant]
     Active Substance: INSULIN GLULISINE
     Indication: TYPE 1 DIABETES MELLITUS
     Route: 058
  10. XETER (ROSUVASTATIN) [Concomitant]
     Indication: HYPERCHOLESTEROLAEMIA
     Route: 065
  11. AMLODIPIN (NORMODIPIN) [Concomitant]
     Indication: HYPERTONIA
     Route: 065

REACTIONS (1)
  - Cerebrovascular accident [Not Recovered/Not Resolved]

NARRATIVE: CASE EVENT DATE: 20161130
